FAERS Safety Report 18626973 (Version 1)
Quarter: 2020Q4

REPORT INFORMATION
  Report Type: Spontaneous
  Country: US (occurrence: US)
  Receive Date: 20201216
  Receipt Date: 20201216
  Transmission Date: 20210114
  Serious: Yes (Hospitalization)
  Sender: FDA-Public Use
  Company Number: None

PATIENT
  Age: 41 Year
  Sex: Male
  Weight: 142.88 kg

DRUGS (1)
  1. LISINOPRIL (LISINOPRIL 2.5 MG TAB) [Suspect]
     Active Substance: LISINOPRIL
     Indication: HYPERTENSION
     Route: 048
     Dates: start: 20200321, end: 20200421

REACTIONS (2)
  - Angioedema [None]
  - Rash [None]

NARRATIVE: CASE EVENT DATE: 20200421
